FAERS Safety Report 25680142 (Version 1)
Quarter: 2025Q3

REPORT INFORMATION
  Report Type: Spontaneous
  Country: US (occurrence: US)
  Receive Date: 20250814
  Receipt Date: 20250814
  Transmission Date: 20251020
  Serious: No
  Sender: STALLERGENES
  Company Number: US-STALCOR-2025-AER-02042

PATIENT
  Sex: Male

DRUGS (3)
  1. PALFORZIA [Suspect]
     Active Substance: PEANUT
     Indication: Food allergy
     Dosage: 300MG-MAINTAINENCE DOSE- DISPENSED ON 02-APR-2025
     Route: 048
  2. AUVI-Q [Concomitant]
     Active Substance: EPINEPHRINE
     Indication: Prophylaxis
  3. FLUOCINONIDE [Concomitant]
     Active Substance: FLUOCINONIDE
     Indication: Product used for unknown indication

REACTIONS (1)
  - Therapy interrupted [Not Recovered/Not Resolved]
